FAERS Safety Report 5278359-5 (Version None)
Quarter: 2007Q1

REPORT INFORMATION
  Report Type: 
  Country: None (occurrence: None)
  Receive Date: 20061213
  Receipt Date: 20030822
  Transmission Date: 20070707
  Serious: No
  Sender: FDA-Public Use
  Company Number: 2003UW09284

PATIENT
  Age: 60 Year
  Sex: Female

DRUGS (5)
  1. SEROQUEL [Suspect]
     Indication: OBSESSIVE-COMPULSIVE DISORDER
     Dosage: 100 MG QID PO
     Route: 048
     Dates: start: 20010323
  2. LUVOX [Concomitant]
  3. ANAFRANIL [Concomitant]
  4. LORAZEPAM [Concomitant]
  5. TRAZODONE HCL [Concomitant]

REACTIONS (1)
  - TARDIVE DYSKINESIA [None]
